FAERS Safety Report 8404120 (Version 2)
Quarter: 2013Q2

REPORT INFORMATION
  Report Type: Spontaneous
  Country: US (occurrence: None)
  Receive Date: 20111227
  Receipt Date: 20120426
  Transmission Date: 20140414
  Serious: Yes (Other)
  Sender: FDA-Public Use
  Company Number: PHEH2011US009671

PATIENT
  Sex: Female

DRUGS (3)
  1. GILENYA [Suspect]
     Indication: MULTIPLE SCLEROSIS
     Dosage: 0.5 MG, QD, ORAL
     Route: 048
     Dates: start: 201102, end: 20110926
  2. LYRICA (PREGABALIN) [Concomitant]
  3. ENABLEX (DARIFENACIN HYDROBROMIDE) [Concomitant]

REACTIONS (1)
  - MACULAR OEDEMA [None]
